FAERS Safety Report 5231683-4 (Version None)
Quarter: 2007Q1

REPORT INFORMATION
  Report Type: 
  Country: None (occurrence: None)
  Receive Date: 20070206
  Receipt Date: 20070125
  Transmission Date: 20070707
  Serious: Yes (Death)
  Sender: FDA-Public Use
  Company Number: PH-PFIZER INC-2007008174

PATIENT
  Sex: Male
  Weight: 55 kg

DRUGS (9)
  1. SULPERAZONE [Suspect]
     Indication: GASTROINTESTINAL INFECTION
     Dates: start: 20061201, end: 20061210
  2. SULPERAZONE [Suspect]
     Indication: INTESTINAL OBSTRUCTION
  3. CIPROFLOXACIN HCL [Concomitant]
  4. STREPTOMYCIN [Concomitant]
  5. HYDROCORTISONE [Concomitant]
  6. BERODUAL [Concomitant]
  7. ISOPTIN [Concomitant]
  8. IMDUR [Concomitant]
  9. LIPITOR [Concomitant]

REACTIONS (1)
  - DEATH [None]
